FAERS Safety Report 17324862 (Version 1)
Quarter: 2020Q1

REPORT INFORMATION
  Report Type: Spontaneous
  Country: US (occurrence: US)
  Receive Date: 20200125
  Receipt Date: 20200125
  Transmission Date: 20200409
  Serious: No
  Sender: FDA-Public Use
  Company Number: None

PATIENT
  Age: 37 Year
  Sex: Female
  Weight: 48.15 kg

DRUGS (3)
  1. MVI [Concomitant]
     Active Substance: VITAMINS
  2. XYREM [Suspect]
     Active Substance: SODIUM OXYBATE
     Indication: NARCOLEPSY
     Route: 048
  3. XYREM RITALIN LA [Concomitant]

REACTIONS (5)
  - Loss of personal independence in daily activities [None]
  - Product taste abnormal [None]
  - Somnolence [None]
  - Therapeutic response decreased [None]
  - Product quality issue [None]

NARRATIVE: CASE EVENT DATE: 20191029
